FAERS Safety Report 21063206 (Version 2)
Quarter: 2022Q3

REPORT INFORMATION
  Report Type: Report from Study
  Country: CA (occurrence: CA)
  Receive Date: 20220711
  Receipt Date: 20220927
  Transmission Date: 20221027
  Serious: Yes (Hospitalization)
  Sender: FDA-Public Use
  Company Number: CA-JNJFOC-20220707916

PATIENT
  Age: 75 Year
  Sex: Female
  Weight: 84.5 kg

DRUGS (2)
  1. REMICADE [Suspect]
     Active Substance: INFLIXIMAB
     Indication: Crohn^s disease
     Dosage: ON 04-JUL-2022, PATIENT RECEIVED 45TH INFLIXIMAB RECOMBINANT INFUSION OF 900 MG AND PARTIAL HARVEY-B
     Route: 042
     Dates: start: 20160630
  2. REMICADE [Suspect]
     Active Substance: INFLIXIMAB
     Route: 042

REACTIONS (2)
  - Hysterectomy [Recovering/Resolving]
  - Diarrhoea [Unknown]

NARRATIVE: CASE EVENT DATE: 20220511
